FAERS Safety Report 18022196 (Version 3)
Quarter: 2020Q3

REPORT INFORMATION
  Report Type: Report from Study
  Country: CA (occurrence: CA)
  Receive Date: 20200714
  Receipt Date: 20200902
  Transmission Date: 20201103
  Serious: Yes (Hospitalization)
  Sender: FDA-Public Use
  Company Number: CA-JNJFOC-20200631811

PATIENT
  Age: 62 Year
  Sex: Female
  Weight: 79 kg

DRUGS (1)
  1. REMICADE [Suspect]
     Active Substance: INFLIXIMAB
     Indication: PSORIASIS
     Route: 042
     Dates: start: 20120606

REACTIONS (5)
  - Clostridium difficile infection [Recovered/Resolved with Sequelae]
  - Abscess jaw [Recovered/Resolved]
  - Renal impairment [Recovered/Resolved with Sequelae]
  - Hypotension [Unknown]
  - Arthritis [Unknown]

NARRATIVE: CASE EVENT DATE: 202004
